FAERS Safety Report 4599900-1 (Version None)
Quarter: 2005Q1

REPORT INFORMATION
  Report Type: 
  Country: None (occurrence: None)
  Receive Date: 20050303
  Receipt Date: 20050210
  Transmission Date: 20050727
  Serious: Yes (Other)
  Sender: FDA-Public Use
  Company Number: GBS050216623

PATIENT
  Age: 83 Year
  Sex: Female
  Weight: 54 kg

DRUGS (4)
  1. RALOXIFENE HCL [Suspect]
     Indication: OSTEOPOROSIS
     Dosage: 60 MG DAY
     Dates: start: 20031001, end: 20050121
  2. CO-PROXAMOL [Concomitant]
  3. RANITIDINE [Concomitant]
  4. GAVISCON [Concomitant]

REACTIONS (1)
  - BREAST PAIN [None]
